FAERS Safety Report 5269624-6 (Version None)
Quarter: 2007Q1

REPORT INFORMATION
  Report Type: 
  Country: None (occurrence: None)
  Receive Date: 20061220
  Receipt Date: 20061011
  Transmission Date: 20070707
  Serious: Yes (Death)
  Sender: FDA-Public Use
  Company Number: OXER20060078

PATIENT
  Age: 33 Year
  Sex: Female
  Weight: 60.3284 kg

DRUGS (5)
  1. OXYCODONE, UNK,  UNKNOWN [Suspect]
     Indication: DRUG USE FOR UNKNOWN INDICATION
     Dates: start: 20050623, end: 20050623
  2. PROZAC [Concomitant]
  3. THIAZIDE [Concomitant]
  4. BETAGEN [Concomitant]
  5. MULTI-VITAMIN [Concomitant]

REACTIONS (1)
  - DRUG TOXICITY [None]
